FAERS Safety Report 23169159 (Version 1)
Quarter: 2023Q4

REPORT INFORMATION
  Report Type: Spontaneous
  Country: DE (occurrence: DE)
  Receive Date: 20231110
  Receipt Date: 20231110
  Transmission Date: 20240110
  Serious: Yes (Other)
  Sender: FDA-Public Use
  Company Number: None

PATIENT
  Sex: Female

DRUGS (6)
  1. RAMIPRIL [Suspect]
     Active Substance: RAMIPRIL
     Indication: Cardiac failure
     Dates: start: 202201
  2. RAMIPRIL [Suspect]
     Active Substance: RAMIPRIL
     Indication: Cardiovascular event prophylaxis
  3. RAMIPRIL [Suspect]
     Active Substance: RAMIPRIL
     Indication: Hypertension
  4. NAPROXEN [Suspect]
     Active Substance: NAPROXEN
     Indication: Antipyresis
     Dates: start: 202201
  5. NAPROXEN [Suspect]
     Active Substance: NAPROXEN
     Indication: Analgesic therapy
  6. NALOXONE HYDROCHLORIDE\TILIDINE HYDROCHLORIDE [Suspect]
     Active Substance: NALOXONE HYDROCHLORIDE\TILIDINE HYDROCHLORIDE
     Indication: Product used for unknown indication
     Dates: start: 202201

REACTIONS (8)
  - Dependence [Not Recovered/Not Resolved]
  - Drug dependence [Not Recovered/Not Resolved]
  - Intentional self-injury [Not Recovered/Not Resolved]
  - Condition aggravated [Not Recovered/Not Resolved]
  - Cerebral disorder [Not Recovered/Not Resolved]
  - Mental disorder [Not Recovered/Not Resolved]
  - Illusion [Not Recovered/Not Resolved]
  - Physical assault [Not Recovered/Not Resolved]
